FAERS Safety Report 8229247-3 (Version None)
Quarter: 2012Q1

REPORT INFORMATION
  Report Type: 
  Country: None (occurrence: None)
  Receive Date: 20120322
  Receipt Date: 20120319
  Transmission Date: 20120608
  Serious: Yes (Hospitalization)
  Sender: FDA-Public Use
  Company Number: FR-AMGEN-FRASP2012004078

PATIENT
  Age: 67 Year
  Sex: Female

DRUGS (7)
  1. CRESTOR [Suspect]
     Indication: DYSLIPIDAEMIA
     Dosage: 5 MG, UNK
     Route: 048
     Dates: end: 20111114
  2. METFORMIN HCL [Concomitant]
     Indication: DIABETES MELLITUS
     Dosage: 850 MG, UNK
     Route: 048
  3. NEBIVOLOL HCL [Concomitant]
     Indication: HYPERTENSION
     Dosage: 5 MG, UNK
     Route: 048
  4. TRAMADOL HCL [Concomitant]
     Indication: PAIN
     Dosage: 100 MG/ML, UNK
     Route: 048
  5. TRABECTEDIN [Suspect]
     Indication: SARCOMA UTERUS
     Dosage: 1.2 MG, UNK
     Route: 042
     Dates: start: 20111107, end: 20111107
  6. NEULASTA [Suspect]
     Indication: SARCOMA UTERUS
     Dosage: UNK
     Dates: start: 20111108, end: 20111108
  7. ACETAMINOPHEN [Suspect]
     Indication: PAIN
     Dosage: 1 G, UNK
     Route: 048
     Dates: end: 20111114

REACTIONS (1)
  - CYTOLYTIC HEPATITIS [None]
